FAERS Safety Report 8143248-5 (Version None)
Quarter: 2012Q1

REPORT INFORMATION
  Report Type: 
  Country: None (occurrence: None)
  Receive Date: 20120217
  Receipt Date: 20120215
  Transmission Date: 20120608
  Serious: Yes (Other)
  Sender: FDA-Public Use
  Company Number: US-PFIZER INC-2012041890

PATIENT
  Sex: Female

DRUGS (2)
  1. ZOLOFT [Suspect]
     Dosage: 100 MG, DAILY
  2. SEROQUEL [Suspect]
     Dosage: UNK

REACTIONS (3)
  - TREMOR [None]
  - OBSESSIVE-COMPULSIVE DISORDER [None]
  - VISION BLURRED [None]
